FAERS Safety Report 17482960 (Version 1)
Quarter: 2020Q1

REPORT INFORMATION
  Report Type: Spontaneous
  Country: US (occurrence: US)
  Receive Date: 20200302
  Receipt Date: 20200302
  Transmission Date: 20200409
  Serious: No
  Sender: FDA-Public Use
  Company Number: US-PFIZER INC-2020087846

PATIENT
  Sex: Female

DRUGS (1)
  1. IBRANCE [Suspect]
     Active Substance: PALBOCICLIB
     Dosage: UNK

REACTIONS (6)
  - Dyspepsia [Unknown]
  - Dysgeusia [Unknown]
  - Accident [Unknown]
  - Oral disorder [Unknown]
  - Chest discomfort [Unknown]
  - Hypertension [Unknown]
